FAERS Safety Report 8716353 (Version 2)
Quarter: 2012Q4

REPORT INFORMATION
  Report Type: 
  Country: US (occurrence: US)
  Receive Date: 20120810
  Receipt Date: 20121025
  Transmission Date: 20130627
  Serious: No
  Sender: FDA-Public Use
  Company Number: US-009507513-1207USA002588

PATIENT

DRUGS (3)
  1. VICTRELIS [Suspect]
     Dosage: 200 mg, tid
     Route: 048
     Dates: start: 20120705
  2. REBETOL [Suspect]
  3. PEGASYS [Suspect]

REACTIONS (1)
  - Abdominal discomfort [Unknown]
